FAERS Safety Report 5273622-6 (Version None)
Quarter: 2007Q1

REPORT INFORMATION
  Report Type: 
  Country: None (occurrence: None)
  Receive Date: 20070323
  Receipt Date: 20070312
  Transmission Date: 20070707
  Serious: Yes (Other)
  Sender: FDA-Public Use
  Company Number: PHRM2006FR03213

PATIENT
  Age: 75 Year
  Sex: Male

DRUGS (1)
  1. VALSARTAN AND HYDROCHLOROTHIAZIDE [Suspect]
     Indication: HYPERTENSION
     Dosage: 1 DF, QD
     Route: 048
     Dates: start: 20030520, end: 20061121

REACTIONS (19)
  - ANAEMIA MACROCYTIC [None]
  - BLOOD FOLATE DECREASED [None]
  - BLOOD IMMUNOGLOBULIN E INCREASED [None]
  - C-REACTIVE PROTEIN INCREASED [None]
  - FATIGUE [None]
  - FULL BLOOD COUNT DECREASED [None]
  - GASTROENTERITIS [None]
  - HAEMOGLOBIN DECREASED [None]
  - LEUKAEMIA [None]
  - LIBIDO DECREASED [None]
  - LYMPHOCYTE COUNT INCREASED [None]
  - MACROCYTOSIS [None]
  - MEAN CELL VOLUME ABNORMAL [None]
  - NEUTROPHIL COUNT DECREASED [None]
  - PANCYTOPENIA [None]
  - PLATELET COUNT DECREASED [None]
  - RED BLOOD CELL COUNT DECREASED [None]
  - SERUM FERRITIN INCREASED [None]
  - VITAMIN B12 DECREASED [None]
